FAERS Safety Report 17230067 (Version 2)
Quarter: 2021Q1

REPORT INFORMATION
  Report Type: Report from Study
  Country: CO (occurrence: CO)
  Receive Date: 20200103
  Receipt Date: 20210211
  Transmission Date: 20210419
  Serious: Yes (Hospitalization, Other)
  Sender: FDA-Public Use
  Company Number: CO-TOLMAR, INC.-19CO001275

PATIENT
  Age: 78 Year
  Sex: Male

DRUGS (3)
  1. ELIGARD [Suspect]
     Active Substance: LEUPROLIDE ACETATE
     Indication: PROSTATE CANCER
     Dosage: 22.5 MG
     Route: 058
     Dates: start: 20170201
  2. ELIGARD [Suspect]
     Active Substance: LEUPROLIDE ACETATE
     Dosage: 22.5 MG
     Route: 058
     Dates: start: 20180822, end: 20190301
  3. ELIGARD [Suspect]
     Active Substance: LEUPROLIDE ACETATE
     Dosage: 22.5 MG
     Route: 058
     Dates: start: 20190301

REACTIONS (10)
  - Upper limb fracture [Not Recovered/Not Resolved]
  - Tooth disorder [Not Recovered/Not Resolved]
  - Therapy interrupted [Unknown]
  - Musculoskeletal pain [Not Recovered/Not Resolved]
  - Pain in extremity [Not Recovered/Not Resolved]
  - Wrist fracture [Not Recovered/Not Resolved]
  - Joint injury [Recovered/Resolved]
  - Fall [Not Recovered/Not Resolved]
  - Hyperhidrosis [Unknown]
  - Muscle spasms [Not Recovered/Not Resolved]

NARRATIVE: CASE EVENT DATE: 20180515
